FAERS Safety Report 25805976 (Version 1)
Quarter: 2025Q3

REPORT INFORMATION
  Report Type: Spontaneous
  Country: GB (occurrence: GB)
  Receive Date: 20250916
  Receipt Date: 20250916
  Transmission Date: 20251020
  Serious: Yes (Other)
  Sender: TEVA
  Company Number: GB-MHRA-TPP30004059C10739610YC1756905879975

PATIENT
  Age: 78 Year
  Sex: Female
  Weight: 62 kg

DRUGS (27)
  1. GABAPENTIN [Suspect]
     Active Substance: GABAPENTIN
     Indication: Ill-defined disorder
     Route: 048
  2. BACLOFEN [Concomitant]
     Active Substance: BACLOFEN
     Indication: Ill-defined disorder
     Dates: start: 20250730
  3. ALGINATE [Concomitant]
     Indication: Ill-defined disorder
     Dates: start: 20250826
  4. MICRALAX [Concomitant]
     Indication: Ill-defined disorder
     Dates: start: 20250826
  5. IBUPROFEN [Concomitant]
     Active Substance: IBUPROFEN
     Indication: Ill-defined disorder
     Dates: start: 20250801
  6. SENNA [Concomitant]
     Active Substance: SENNOSIDES
     Indication: Ill-defined disorder
     Dosage: DAILY DOSE: 2 DOSAGE FORM, AT NIGHT
     Dates: start: 20250721
  7. ATORVASTATIN [Concomitant]
     Active Substance: ATORVASTATIN
     Indication: Ill-defined disorder
     Dosage: DAILY DOSE: 1 DOSAGE FORM, AT NIGHTS
     Dates: start: 20250721
  8. LANSOPRAZOLE [Concomitant]
     Active Substance: LANSOPRAZOLE
     Indication: Ill-defined disorder
     Dosage: DAILY DOSE: 1 DOSAGE FORM, MORNING
     Dates: start: 20250721
  9. ZEROBASE [Concomitant]
     Indication: Ill-defined disorder
     Dates: start: 20250808
  10. CODEINE PHOSPHATE [Concomitant]
     Active Substance: CODEINE PHOSPHATE
     Indication: Ill-defined disorder
     Dosage: DAILY DOSE: 4 DOSAGE FORM
     Dates: start: 20250801
  11. GABAPENTIN [Concomitant]
     Active Substance: GABAPENTIN
     Indication: Ill-defined disorder
     Dates: start: 20250813
  12. CALCIUM CARBONATE\CHOLECALCIFEROL [Concomitant]
     Active Substance: CALCIUM CARBONATE\CHOLECALCIFEROL
     Indication: Ill-defined disorder
     Dosage: DAILY DOSE: 1 DOSAGE FORM, CHEW
     Dates: start: 20250212
  13. CLOPIDOGREL [Concomitant]
     Active Substance: CLOPIDOGREL BISULFATE
     Indication: Ill-defined disorder
     Dosage: DAILY DOSE: 1 DOSAGE FORM, MORNING
     Dates: start: 20250721
  14. CHOLECALCIFEROL [Concomitant]
     Active Substance: CHOLECALCIFEROL
     Indication: Ill-defined disorder
     Dosage: DAILY DOSE: 1 DOSAGE FORM, IN THE MORNING
     Dates: start: 20250721
  15. HYDROCORTISONE [Concomitant]
     Active Substance: HYDROCORTISONE
     Indication: Ill-defined disorder
     Dates: start: 20250212
  16. DALTEPARIN [Concomitant]
     Active Substance: DALTEPARIN
     Indication: Ill-defined disorder
     Dates: start: 20250721
  17. DOCUSATE SODIUM [Concomitant]
     Active Substance: DOCUSATE SODIUM
     Indication: Ill-defined disorder
     Dosage: DAILY DOSE: 4 DOSAGE FORM
     Dates: start: 20250807
  18. BIATAIN SILICONE [Concomitant]
     Indication: Ill-defined disorder
     Dates: start: 20250804, end: 20250824
  19. LACTULOSE [Concomitant]
     Active Substance: LACTULOSE
     Indication: Ill-defined disorder
     Dosage: DAILY DOSE:  30 ML
     Dates: start: 20250728
  20. SANDO-K [Concomitant]
     Indication: Ill-defined disorder
     Dates: start: 20250826, end: 20250829
  21. AMLODIPINE [Concomitant]
     Active Substance: AMLODIPINE BESYLATE
     Indication: Ill-defined disorder
     Dates: start: 20250212
  22. SERTRALINE [Concomitant]
     Active Substance: SERTRALINE HYDROCHLORIDE
     Indication: Ill-defined disorder
     Dates: start: 20250212
  23. PREGABALIN [Concomitant]
     Active Substance: PREGABALIN
     Indication: Ill-defined disorder
     Dosage: DAILY DOSE: 2 DOSAGE FORM
     Dates: start: 20250903
  24. CLOTRIMAZOLE [Concomitant]
     Active Substance: CLOTRIMAZOLE
     Indication: Ill-defined disorder
     Dates: start: 20250819, end: 20250826
  25. CYANOCOBALAMIN [Concomitant]
     Active Substance: CYANOCOBALAMIN
     Indication: Ill-defined disorder
     Dates: start: 20250721
  26. ACETAMINOPHEN [Concomitant]
     Active Substance: ACETAMINOPHEN
     Indication: Ill-defined disorder
     Dates: start: 20250721
  27. CLOBETASOL PROPIONATE [Concomitant]
     Active Substance: CLOBETASOL PROPIONATE
     Indication: Ill-defined disorder
     Dates: start: 20250212

REACTIONS (2)
  - Depressed level of consciousness [Unknown]
  - Somnolence [Recovered/Resolved]
